FAERS Safety Report 15422098 (Version 1)
Quarter: 2018Q3

REPORT INFORMATION
  Report Type: Spontaneous
  Country: US (occurrence: US)
  Receive Date: 20180924
  Receipt Date: 20180924
  Transmission Date: 20181010
  Serious: No
  Sender: FDA-Public Use
  Company Number: US-ALLERGAN-1836656US

PATIENT
  Sex: Female

DRUGS (3)
  1. LINZESS [Suspect]
     Active Substance: LINACLOTIDE
     Dosage: 145 ?G, BID
     Route: 065
  2. LINZESS [Suspect]
     Active Substance: LINACLOTIDE
     Dosage: 2 DF, BID
     Route: 065
  3. LINZESS [Suspect]
     Active Substance: LINACLOTIDE
     Indication: IRRITABLE BOWEL SYNDROME
     Dosage: 290 ?G, QD
     Route: 065

REACTIONS (8)
  - Off label use [Unknown]
  - Drug ineffective [Unknown]
  - Inappropriate schedule of drug administration [Unknown]
  - Insomnia [Unknown]
  - Diarrhoea [Unknown]
  - Incorrect dosage administered [Unknown]
  - Somnolence [Unknown]
  - Drug dispensing error [Unknown]
